FAERS Safety Report 7809090-7 (Version None)
Quarter: 2011Q4

REPORT INFORMATION
  Report Type: 
  Country: None (occurrence: None)
  Receive Date: 20111012
  Receipt Date: 20110929
  Transmission Date: 20120403
  Serious: Yes (Life-Threatening, Hospitalization)
  Sender: FDA-Public Use
  Company Number: CH-ELI_LILLY_AND_COMPANY-CH201109008446

PATIENT
  Age: 74 Year
  Sex: Female
  Weight: 65 kg

DRUGS (8)
  1. IBRUPROFEN [Concomitant]
  2. FORTEO [Suspect]
     Indication: OSTEOPOROSIS
     Dosage: 20 UG, QD
     Route: 058
     Dates: start: 20110317
  3. MABTHERA [Concomitant]
     Dosage: UNK UNK, TWICE A YEAR
  4. CALCIUM SANDOZ [Concomitant]
     Dosage: 3 DF, UNK
  5. INSULIN NOVOMIX                    /02607201/ [Concomitant]
     Dosage: UNK UNK, EACH EVENING
  6. CO-ENATEC [Concomitant]
  7. PREDNISONE [Concomitant]
  8. INSULIN NOVORAPID [Concomitant]
     Dosage: UNK, TID

REACTIONS (2)
  - LEUKOPENIA [None]
  - MALAISE [None]
